FAERS Safety Report 15290651 (Version 1)
Quarter: 2018Q3

REPORT INFORMATION
  Report Type: Report from Study
  Country: DE (occurrence: DE)
  Receive Date: 20180817
  Receipt Date: 20180817
  Transmission Date: 20181010
  Serious: Yes (Hospitalization, Other)
  Sender: FDA-Public Use
  Company Number: DE-SHIRE-DE201825532

PATIENT

DRUGS (1)
  1. REVESTIVE [Suspect]
     Active Substance: TEDUGLUTIDE
     Indication: SHORT-BOWEL SYNDROME
     Dosage: 0.18 ML (0.05 MG/KG), 1X/DAY:QD
     Route: 058
     Dates: start: 20180626, end: 20180723

REACTIONS (5)
  - Vomiting [Recovered/Resolved]
  - Device related infection [Recovering/Resolving]
  - Pyrexia [Recovering/Resolving]
  - Liver disorder [Not Recovered/Not Resolved]
  - Sepsis [Unknown]

NARRATIVE: CASE EVENT DATE: 20180705
